FAERS Safety Report 6063531-7 (Version None)
Quarter: 2009Q1

REPORT INFORMATION
  Report Type: 
  Country: None (occurrence: None)
  Receive Date: 20090203
  Receipt Date: 20090122
  Transmission Date: 20090719
  Serious: Yes (Other)
  Sender: FDA-Public Use
  Company Number: US-ELI_LILLY_AND_COMPANY-US200901003779

PATIENT
  Sex: Female

DRUGS (4)
  1. ZYPREXA [Suspect]
     Indication: SCHIZOPHRENIA
     Dosage: UNK, UNK
     Dates: start: 19980101
  2. ZYPREXA [Suspect]
     Dosage: 10 MG, UNK
     Dates: start: 20081001
  3. SEROQUEL [Concomitant]
     Dosage: UNK, UNK
     Dates: start: 20081018
  4. RISPERDAL [Concomitant]
     Dosage: UNK, UNK
     Dates: start: 20081018

REACTIONS (5)
  - AKATHISIA [None]
  - DIABETES MELLITUS [None]
  - HIP FRACTURE [None]
  - LOWER LIMB FRACTURE [None]
  - OSTEOPOROSIS [None]
